FAERS Safety Report 18207752 (Version 1)
Quarter: 2020Q3

REPORT INFORMATION
  Report Type: Spontaneous
  Country: US (occurrence: US)
  Receive Date: 20200828
  Receipt Date: 20200828
  Transmission Date: 20201103
  Serious: Yes (Death)
  Sender: FDA-Public Use
  Company Number: None

PATIENT
  Age: 34 Year
  Sex: Female
  Weight: 69.75 kg

DRUGS (2)
  1. PRIVIGEN [Suspect]
     Active Substance: HUMAN IMMUNOGLOBULIN G
     Indication: RENAL FAILURE
     Dosage: ?          OTHER FREQUENCY:EVERY 14?15 DAYS;?
     Route: 042
     Dates: start: 20190419, end: 20200825
  2. PRIVIGEN [Suspect]
     Active Substance: HUMAN IMMUNOGLOBULIN G
     Indication: END STAGE RENAL DISEASE
     Dosage: ?          OTHER FREQUENCY:EVERY 14 TO 15 DAY;?
     Route: 042
     Dates: start: 20190419, end: 20200825

REACTIONS (2)
  - Dyspnoea [None]
  - Infusion related reaction [None]

NARRATIVE: CASE EVENT DATE: 20200826
